FAERS Safety Report 8582289-0 (Version None)
Quarter: 2012Q3

REPORT INFORMATION
  Report Type: 
  Country: None (occurrence: None)
  Receive Date: 20120727
  Receipt Date: 20120718
  Transmission Date: 20120928
  Serious: Yes (Other)
  Sender: FDA-Public Use
  Company Number: AUR-APL-2012-03094

PATIENT
  Age: 27 Year
  Sex: Male
  Weight: 85 kg

DRUGS (5)
  1. FLUOXETINE [Suspect]
     Indication: PRODUCT USED FOR UNKNOWN INDICATION
     Dates: start: 20120217, end: 20120417
  2. DOSULEPIN (DOSULEPIN) [Concomitant]
  3. CINCHOCAINE (CINCHOCAINE) [Concomitant]
  4. FUSIDIC ACID [Concomitant]
  5. GERMOLOIDS (GERMOLOIDS /01839401/) [Concomitant]

REACTIONS (2)
  - NOCTURIA [None]
  - PRIAPISM [None]
